FAERS Safety Report 15517900 (Version 4)
Quarter: 2019Q4

REPORT INFORMATION
  Report Type: Spontaneous
  Country: US (occurrence: US)
  Receive Date: 20181017
  Receipt Date: 20191105
  Transmission Date: 20200122
  Serious: Yes (Hospitalization, Other)
  Sender: FDA-Public Use
  Company Number: US-SA-2018SA286365

PATIENT
  Age: 53 Year
  Sex: Female

DRUGS (1)
  1. AUBAGIO [Suspect]
     Active Substance: TERIFLUNOMIDE
     Indication: MULTIPLE SCLEROSIS
     Dosage: 14 MG, QD
     Route: 048
     Dates: start: 20171108

REACTIONS (14)
  - Multiple sclerosis relapse [Unknown]
  - Muscle tightness [Unknown]
  - Pain in extremity [Unknown]
  - Back pain [Unknown]
  - Alopecia [Unknown]
  - Neck pain [Unknown]
  - Chest pain [Unknown]
  - Multiple sclerosis [Unknown]
  - Pain in extremity [Unknown]
  - Alopecia [Unknown]
  - Nail discolouration [Unknown]
  - Blood pressure increased [Unknown]
  - Nausea [Unknown]
  - Weight decreased [Unknown]

NARRATIVE: CASE EVENT DATE: 201910
